FAERS Safety Report 4412780-X (Version None)
Quarter: 2004Q3

REPORT INFORMATION
  Report Type: 
  Country: None (occurrence: None)
  Receive Date: 20040727
  Receipt Date: 20040713
  Transmission Date: 20050211
  Serious: Yes (Other)
  Sender: FDA-Public Use
  Company Number: 2004223747US

PATIENT
  Age: 67 Year
  Sex: Female

DRUGS (3)
  1. PROVERA [Suspect]
     Indication: MENOPAUSAL SYMPTOMS
     Dates: start: 19960101
  2. PREMPRO [Suspect]
     Indication: MENOPAUSAL SYMPTOMS
     Dates: start: 19960101
  3. ESTRACE [Suspect]
     Indication: MENOPAUSAL SYMPTOMS
     Dates: start: 19960101

REACTIONS (1)
  - BREAST CANCER [None]
